FAERS Safety Report 13825766 (Version 1)
Quarter: 2017Q3

REPORT INFORMATION
  Report Type: Report from Study
  Country: US (occurrence: US)
  Receive Date: 20170802
  Receipt Date: 20170802
  Transmission Date: 20171127
  Serious: Yes (Other)
  Sender: FDA-Public Use
  Company Number: US-ACTELION-A-US2017-157474

PATIENT
  Age: 79 Year
  Sex: Female
  Weight: 85.26 kg

DRUGS (2)
  1. TRACLEER [Suspect]
     Active Substance: BOSENTAN
     Indication: PULMONARY HYPERTENSION
     Dosage: 62.5 MG, BID
     Route: 048
  2. XARELTO [Concomitant]
     Active Substance: RIVAROXABAN

REACTIONS (1)
  - Foot fracture [Unknown]
